FAERS Safety Report 25853466 (Version 2)
Quarter: 2025Q4

REPORT INFORMATION
  Report Type: Spontaneous
  Country: CN (occurrence: CN)
  Receive Date: 20250926
  Receipt Date: 20251023
  Transmission Date: 20260117
  Serious: Yes (Other)
  Sender: ALEXION PHARMACEUTICALS
  Company Number: CN-AstraZeneca-CH-00957518A

PATIENT
  Age: 46 Year
  Sex: Female

DRUGS (5)
  1. IMFINZI [Suspect]
     Active Substance: DURVALUMAB
     Indication: Lung adenocarcinoma
     Dosage: 1000 MG INTRAVENOUS DRIP (IVGTT) D1
  2. IMFINZI [Suspect]
     Active Substance: DURVALUMAB
     Dosage: ADMINISTERED ONCE EVERY 12 D (Q12D)] FOR MAINTENANCE THERAPY
  3. IMFINZI [Suspect]
     Active Substance: DURVALUMAB
     Dosage: 1000 MG IVGTT D1 Q21D
  4. PACLITAXEL [Concomitant]
     Active Substance: PACLITAXEL
  5. CATEQUENTINIB [Concomitant]
     Active Substance: CATEQUENTINIB
     Dosage: 10 MG PO ONCE DAILY

REACTIONS (2)
  - Metastases to central nervous system [Unknown]
  - Pustular psoriasis [Recovering/Resolving]
